FAERS Safety Report 7689061-4 (Version None)
Quarter: 2011Q3

REPORT INFORMATION
  Report Type: 
  Country: None (occurrence: None)
  Receive Date: 20110817
  Receipt Date: 20110802
  Transmission Date: 20111222
  Serious: Yes (Hospitalization)
  Sender: FDA-Public Use
  Company Number: DE-MYLANLABS-2011S1015717

PATIENT
  Age: 21 Year
  Sex: Female
  Weight: 60 kg

DRUGS (1)
  1. AMITRIPTYLINE HCL [Suspect]
     Route: 048
     Dates: start: 20110724, end: 20110724

REACTIONS (4)
  - BLOOD CREATINE PHOSPHOKINASE INCREASED [None]
  - OVERDOSE [None]
  - SOPOR [None]
  - SUICIDE ATTEMPT [None]
